FAERS Safety Report 23052207 (Version 1)
Quarter: 2023Q4

REPORT INFORMATION
  Report Type: Spontaneous
  Country: US (occurrence: US)
  Receive Date: 20231010
  Receipt Date: 20231010
  Transmission Date: 20240110
  Serious: No
  Sender: FDA-Public Use
  Company Number: US-PRINSTON PHARMACEUTICAL INC.-2022PRN00470

PATIENT
  Age: 46 Year
  Sex: Female

DRUGS (2)
  1. ESCITALOPRAM [Suspect]
     Active Substance: ESCITALOPRAM OXALATE
     Indication: Anxiety
     Dosage: 10 MG, 1X/DAY
     Route: 048
     Dates: start: 20221101, end: 20221227
  2. MONTELUKAST [Concomitant]
     Active Substance: MONTELUKAST SODIUM

REACTIONS (10)
  - Gastrointestinal disorder [Recovered/Resolved]
  - Reaction to excipient [Recovered/Resolved]
  - Withdrawal syndrome [Not Recovered/Not Resolved]
  - Hypophagia [Not Recovered/Not Resolved]
  - Migraine [Recovering/Resolving]
  - Headache [Recovering/Resolving]
  - Brain fog [Recovering/Resolving]
  - Abdominal pain upper [Recovered/Resolved]
  - Weight increased [Recovering/Resolving]
  - Product substitution issue [Recovered/Resolved]

NARRATIVE: CASE EVENT DATE: 20221101
